FAERS Safety Report 10167934 (Version 1)
Quarter: 2014Q2

REPORT INFORMATION
  Report Type: Spontaneous
  Country: IN (occurrence: IN)
  Receive Date: 20140512
  Receipt Date: 20140512
  Transmission Date: 20141212
  Serious: Yes (Other)
  Sender: FDA-Public Use
  Company Number: ALCN2014IN002838

PATIENT
  Age: 19 Year
  Sex: Male

DRUGS (3)
  1. MOXIFLOXACIN HCL [Suspect]
     Indication: POSTOPERATIVE CARE
     Dosage: UNK
     Route: 047
  2. PREDNISOLONE ACETATE [Suspect]
     Indication: POSTOPERATIVE CARE
     Dosage: UNK
     Route: 047
  3. TROPICAMIDE [Suspect]
     Dosage: UNK
     Route: 047

REACTIONS (4)
  - Blindness [Not Recovered/Not Resolved]
  - Endophthalmitis [Not Recovered/Not Resolved]
  - Ulcerative keratitis [Not Recovered/Not Resolved]
  - Eye abscess [Not Recovered/Not Resolved]
